FAERS Safety Report 21393098 (Version 3)
Quarter: 2022Q4

REPORT INFORMATION
  Report Type: Spontaneous
  Country: US (occurrence: US)
  Receive Date: 20220929
  Receipt Date: 20221110
  Transmission Date: 20230112
  Serious: Yes (Other)
  Sender: FDA-Public Use
  Company Number: US-PFIZER INC-2013092304

PATIENT
  Age: 74 Year
  Sex: Female
  Weight: 68.027 kg

DRUGS (25)
  1. ZETIA [Suspect]
     Active Substance: EZETIMIBE
     Indication: Blood cholesterol increased
     Dosage: UNK
     Route: 048
     Dates: start: 201609
  2. ZETIA [Suspect]
     Active Substance: EZETIMIBE
     Indication: Blood cholesterol
     Dosage: 10 MG, ONCE DAILY
     Route: 048
     Dates: start: 201609, end: 201609
  3. ZETIA [Suspect]
     Active Substance: EZETIMIBE
     Dosage: 10 MILLIGRAM, QD
     Route: 048
     Dates: start: 2004
  4. ZETIA [Suspect]
     Active Substance: EZETIMIBE
     Dosage: 10 MILLIGRAM, QD
     Route: 048
     Dates: start: 2022
  5. FOSAMAX [Suspect]
     Active Substance: ALENDRONATE SODIUM
     Indication: Bone disorder
     Dosage: UNK
     Route: 048
  6. FOSAMAX [Suspect]
     Active Substance: ALENDRONATE SODIUM
     Indication: Osteoporosis
     Dosage: UNK
     Route: 048
     Dates: start: 2004
  7. FOSAMAX [Suspect]
     Active Substance: ALENDRONATE SODIUM
     Indication: Blood cholesterol
     Dosage: 70 MILLIGRAM, QW
     Route: 048
     Dates: start: 2008, end: 2009
  8. OXYBUTYNIN [Suspect]
     Active Substance: OXYBUTYNIN
     Dosage: UNK
  9. DETROL LA [Suspect]
     Active Substance: TOLTERODINE TARTRATE
     Indication: Hypertonic bladder
     Dosage: 4 MG, QD
     Route: 048
     Dates: start: 201303, end: 201304
  10. DETROL LA [Suspect]
     Active Substance: TOLTERODINE TARTRATE
     Dosage: 2 MG, QD
     Dates: start: 200306
  11. DETROL LA [Suspect]
     Active Substance: TOLTERODINE TARTRATE
     Dosage: 4 MG,QW
     Dates: start: 2012
  12. TOVIAZ [Suspect]
     Active Substance: FESOTERODINE FUMARATE
     Dosage: UNK
     Dates: start: 2013
  13. VESICARE [Suspect]
     Active Substance: SOLIFENACIN SUCCINATE
     Dosage: UNK
     Dates: end: 2013
  14. PRAVACHOL [Suspect]
     Active Substance: PRAVASTATIN SODIUM
     Indication: Blood cholesterol
     Dosage: UNK
     Dates: start: 2013, end: 2013
  15. IBRANCE [Suspect]
     Active Substance: PALBOCICLIB
     Dosage: UNK
  16. IBANDRONATE SODIUM [Suspect]
     Active Substance: IBANDRONATE SODIUM
     Dosage: UNK
  17. ACTONEL [Suspect]
     Active Substance: RISEDRONATE SODIUM
     Indication: Bone disorder
     Dosage: 150 MG TABLET ONCE A MONTH
  18. BONIVA [Suspect]
     Active Substance: IBANDRONATE SODIUM
     Dosage: UNK
  19. LOVASTATIN [Suspect]
     Active Substance: LOVASTATIN
     Dosage: UNK
     Dates: start: 2015
  20. DETROL [Suspect]
     Active Substance: TOLTERODINE TARTRATE
     Dosage: 2 MILLIGRAM
     Dates: start: 2012
  21. ENABLEX [Suspect]
     Active Substance: DARIFENACIN HYDROBROMIDE
     Dosage: UNK
  22. ATELVIA [Suspect]
     Active Substance: RISEDRONATE SODIUM
     Dosage: UNK
  23. COZAAR [Concomitant]
     Active Substance: LOSARTAN POTASSIUM
     Dosage: UNK
     Route: 048
  24. SYNTHROID [Concomitant]
     Active Substance: LEVOTHYROXINE SODIUM
     Dosage: UNK
  25. ACTONEL [Concomitant]
     Active Substance: RISEDRONATE SODIUM
     Dosage: 1 DOSAGE FORM, QM

REACTIONS (40)
  - Oesophageal pain [Unknown]
  - Chest pain [Unknown]
  - Musculoskeletal chest pain [Unknown]
  - Peripheral swelling [Recovered/Resolved]
  - Musculoskeletal discomfort [Recovered/Resolved]
  - Gait disturbance [Unknown]
  - Adverse event [Unknown]
  - Oropharyngeal pain [Recovered/Resolved]
  - Flatulence [Unknown]
  - Extrasystoles [Recovered/Resolved]
  - Gastrooesophageal reflux disease [Recovered/Resolved]
  - Flatulence [Unknown]
  - Abdominal pain upper [Unknown]
  - Constipation [Unknown]
  - Dry mouth [Recovered/Resolved]
  - Flushing [Recovering/Resolving]
  - Fatigue [Recovering/Resolving]
  - Pain in extremity [Recovered/Resolved]
  - Flatulence [Recovered/Resolved]
  - Musculoskeletal chest pain [Recovered/Resolved]
  - Chest discomfort [Unknown]
  - Chest pain [Recovered/Resolved]
  - Fatigue [Recovering/Resolving]
  - Diarrhoea [Recovered/Resolved]
  - Abdominal pain upper [Unknown]
  - Amnesia [Unknown]
  - Blood pressure abnormal [Recovered/Resolved]
  - Rash [Unknown]
  - Muscle spasms [Unknown]
  - Feeling abnormal [Unknown]
  - Arthralgia [Unknown]
  - Hypokinesia [Unknown]
  - Colonoscopy [Unknown]
  - Diverticulum [Unknown]
  - Blood pressure fluctuation [Unknown]
  - Hypotension [Unknown]
  - Illness [Unknown]
  - Hypersensitivity [Unknown]
  - Joint swelling [Recovering/Resolving]
  - Abdominal distension [Unknown]

NARRATIVE: CASE EVENT DATE: 20130401
